FAERS Safety Report 24858089 (Version 2)
Quarter: 2025Q1

REPORT INFORMATION
  Report Type: Spontaneous
  Country: US (occurrence: US)
  Receive Date: 20250117
  Receipt Date: 20250308
  Transmission Date: 20250409
  Serious: No
  Sender: SANOFI AVENTIS
  Company Number: US-SA-2025SA013939

PATIENT
  Age: 57 Year
  Sex: Female

DRUGS (1)
  1. DUPIXENT [Suspect]
     Active Substance: DUPILUMAB
     Indication: Neurodermatitis
     Dosage: 300 MG, QOW
     Route: 058

REACTIONS (8)
  - Skin ulcer [Unknown]
  - Pain [Unknown]
  - Rash pruritic [Unknown]
  - Bronchitis [Unknown]
  - Erythema [Unknown]
  - Pain of skin [Unknown]
  - Pruritus [Unknown]
  - Inappropriate schedule of product administration [Unknown]
